FAERS Safety Report 15180032 (Version 1)
Quarter: 2018Q3

REPORT INFORMATION
  Report Type: Spontaneous
  Country: US (occurrence: US)
  Receive Date: 20180723
  Receipt Date: 20180723
  Transmission Date: 20181010
  Serious: No
  Sender: FDA-Public Use
  Company Number: US-PFIZER INC-2018293743

PATIENT
  Age: 63 Year
  Sex: Female
  Weight: 56.7 kg

DRUGS (1)
  1. LYRICA [Suspect]
     Active Substance: PREGABALIN
     Indication: FIBROMYALGIA
     Dosage: 75 MG, 2X/DAY (75MG, 1 CAPSULE BY MOUTH TWICE A DAY)
     Route: 048
     Dates: start: 20180706, end: 20180717

REACTIONS (8)
  - Disturbance in attention [Unknown]
  - Somnolence [Unknown]
  - Depression [Unknown]
  - Memory impairment [Unknown]
  - Chills [Unknown]
  - Anxiety [Unknown]
  - Tremor [Unknown]
  - Mental disorder [Unknown]
